FAERS Safety Report 4894662-2 (Version None)
Quarter: 2006Q1

REPORT INFORMATION
  Report Type: 
  Country: None (occurrence: None)
  Receive Date: 20060127
  Receipt Date: 20041015
  Transmission Date: 20060701
  Serious: Yes (Hospitalization)
  Sender: FDA-Public Use
  Company Number: CA-MERCK-0410CAN00298

PATIENT
  Age: 51 Year
  Sex: Male

DRUGS (8)
  1. VIOXX [Suspect]
     Route: 048
     Dates: start: 20020701, end: 20030101
  2. VIOXX [Suspect]
     Route: 048
     Dates: start: 20040901, end: 20041001
  3. BISOPROLOL FUMARATE [Concomitant]
     Route: 065
  4. ASPIRIN [Concomitant]
     Route: 065
  5. CLOPIDOGREL BISULFATE [Concomitant]
     Route: 065
  6. PRAVASTATIN SODIUM [Concomitant]
     Route: 065
  7. ACETAMINOPHEN AND OXYCODONE HYDROCHLORIDE [Concomitant]
     Route: 065
  8. ACETAMINOPHEN AND CODEINE PHOSPHATE [Concomitant]
     Route: 065

REACTIONS (2)
  - GASTROINTESTINAL HAEMORRHAGE [None]
  - MYOCARDIAL INFARCTION [None]
